FAERS Safety Report 9882125 (Version 2)
Quarter: 2014Q2

REPORT INFORMATION
  Report Type: Report from Study
  Country: US (occurrence: US)
  Receive Date: 20140207
  Receipt Date: 20140428
  Transmission Date: 20141212
  Serious: Yes (Other)
  Sender: FDA-Public Use
  Company Number: US-UCBSA-111148

PATIENT
  Age: 70 Year
  Sex: Female
  Weight: 75.7 kg

DRUGS (11)
  1. CERTOLIZUMAB PEGOL [Suspect]
     Indication: RHEUMATOID ARTHRITIS
     Dosage: NUMBER OF DOSES RECEIVED: 48
     Route: 058
     Dates: start: 20120117, end: 20131231
  2. METHOTREXATE [Concomitant]
     Dosage: 5 TABS IN AM, 4 TABS IN PM ONCE A WEEK
     Route: 048
     Dates: start: 20130408
  3. PREDNISONE [Concomitant]
     Dosage: I TABLET DAILY
     Route: 048
     Dates: start: 20130819
  4. TYLENOL ARTHRITIS PAIN ER [Concomitant]
     Route: 048
  5. CALCIUM [Concomitant]
     Dosage: 2-3 TIMES DAILY
     Route: 048
  6. POTASSIUM CHLORIDE CYRS CR [Concomitant]
     Route: 048
  7. BYSTOLIC [Concomitant]
     Route: 048
  8. LISINOPRIL [Concomitant]
     Route: 048
  9. IBUPROFEN [Concomitant]
     Dosage: EVERY 4-6 HOURS
     Route: 048
  10. TRAMADOL HCL [Concomitant]
     Indication: PAIN
     Dosage: EVERY 6 HRS AS NEED
     Route: 048
     Dates: start: 20110303
  11. HYDROCODONE-ACETAMINOPHEN 5-500 [Concomitant]
     Dosage: 5-500 MG (1) TAB EVERY 6-8 HRS PRN
     Route: 048
     Dates: start: 20130408

REACTIONS (1)
  - Latent tuberculosis [Not Recovered/Not Resolved]
